FAERS Safety Report 13446738 (Version 3)
Quarter: 2017Q3

REPORT INFORMATION
  Report Type: Spontaneous
  Country: FR (occurrence: FR)
  Receive Date: 20170417
  Receipt Date: 20170707
  Transmission Date: 20171127
  Serious: Yes (Hospitalization)
  Sender: FDA-Public Use
  Company Number: FR-ROCHE-1921342

PATIENT
  Sex: Female

DRUGS (8)
  1. MABTHERA [Suspect]
     Active Substance: RITUXIMAB
     Indication: THROMBOTIC THROMBOCYTOPENIC PURPURA
     Route: 042
     Dates: start: 20161207, end: 20161207
  2. CORTANCYL [Suspect]
     Active Substance: PREDNISONE
     Indication: THROMBOTIC THROMBOCYTOPENIC PURPURA
     Route: 065
     Dates: start: 20161118
  3. KARDEGIC [Suspect]
     Active Substance: ASPIRIN LYSINE
     Indication: PROPHYLAXIS
     Route: 048
     Dates: start: 20161126
  4. SPECIAFOLDINE [Suspect]
     Active Substance: FOLIC ACID
     Indication: VITAMIN SUPPLEMENTATION
     Route: 065
     Dates: start: 20161121
  5. CORTANCYL [Suspect]
     Active Substance: PREDNISONE
     Route: 065
     Dates: start: 20170109
  6. CORTANCYL [Suspect]
     Active Substance: PREDNISONE
     Route: 065
  7. ORACILLINE [Suspect]
     Active Substance: PENICILLIN V
     Indication: ANTIBIOTIC PROPHYLAXIS
     Dosage: 1,000,000 IU/10 ML
     Route: 048
     Dates: start: 20161220
  8. PANTOPRAZOLE [Suspect]
     Active Substance: PANTOPRAZOLE
     Indication: PROPHYLAXIS AGAINST GASTROINTESTINAL ULCER
     Route: 065
     Dates: start: 20161121

REACTIONS (5)
  - Pre-eclampsia [Unknown]
  - Premature delivery [Unknown]
  - Off label use [Unknown]
  - Product use in unapproved indication [Unknown]
  - Maternal exposure during pregnancy [Unknown]
